FAERS Safety Report 5217873-5 (Version None)
Quarter: 2007Q1

REPORT INFORMATION
  Report Type: 
  Country: None (occurrence: None)
  Receive Date: 20061130
  Receipt Date: 20060731
  Transmission Date: 20070707
  Serious: Yes (Hospitalization)
  Sender: FDA-Public Use
  Company Number: US200608000479

PATIENT
  Age: 56 Year
  Sex: Male
  Weight: 88.4 kg

DRUGS (4)
  1. ZYPREXA [Suspect]
     Dosage: 5 MG, 10 MG
     Dates: start: 20031001, end: 20040119
  2. ZYPREXA [Suspect]
     Dosage: 5 MG, 10 MG
     Dates: start: 20040119, end: 20050115
  3. CARBAMAZEPINE [Concomitant]
  4. METOPROLOL TARTRATE [Concomitant]

REACTIONS (3)
  - CEREBROVASCULAR ACCIDENT [None]
  - DIABETES MELLITUS [None]
  - HYPERTENSION [None]
